FAERS Safety Report 4642680-1 (Version None)
Quarter: 2005Q2

REPORT INFORMATION
  Report Type: 
  Country: None (occurrence: None)
  Receive Date: 20050422
  Receipt Date: 20050411
  Transmission Date: 20051028
  Serious: Yes (Hospitalization, Other)
  Sender: FDA-Public Use
  Company Number: US-JNJFOC-20050402559

PATIENT
  Sex: Female

DRUGS (7)
  1. DITROPAN XL [Suspect]
     Indication: DRUG USE FOR UNKNOWN INDICATION
     Dosage: HAS TAKEN FOR 8 TO 10 YEARS.
     Route: 049
  2. COUMADIN [Concomitant]
     Route: 049
  3. AMARYL [Concomitant]
     Route: 049
  4. POTASSIUM CHLORIDE [Concomitant]
     Route: 049
  5. MAVIK [Concomitant]
     Route: 049
  6. LASIX [Concomitant]
     Route: 049
  7. ATENOLOL [Concomitant]
     Route: 049

REACTIONS (5)
  - CEREBROVASCULAR ACCIDENT [None]
  - FALL [None]
  - HALLUCINATION [None]
  - INJURY [None]
  - UNEVALUABLE EVENT [None]
